FAERS Safety Report 4879554-7 (Version None)
Quarter: 2006Q1

REPORT INFORMATION
  Report Type: 
  Country: None (occurrence: None)
  Receive Date: 20060113
  Receipt Date: 20060106
  Transmission Date: 20060701
  Serious: Yes (Other)
  Sender: FDA-Public Use
  Company Number: PHNU2006SI00473

PATIENT
  Age: 48 Year
  Sex: Female
  Weight: 59 kg

DRUGS (1)
  1. LAMISIL [Suspect]
     Indication: ONYCHOMYCOSIS
     Dosage: 250 MG, QD
     Route: 048
     Dates: start: 20051004, end: 20051220

REACTIONS (6)
  - AGEUSIA [None]
  - ANOREXIA [None]
  - ANOSMIA [None]
  - ASTHENIA [None]
  - DIARRHOEA [None]
  - WEIGHT DECREASED [None]
